FAERS Safety Report 8230039-X (Version None)
Quarter: 2012Q1

REPORT INFORMATION
  Report Type: 
  Country: None (occurrence: None)
  Receive Date: 20120307
  Receipt Date: 20101018
  Transmission Date: 20120608
  Serious: No
  Sender: FDA-Public Use
  Company Number: PHHY2010US65862

PATIENT
  Age: 82 Year
  Sex: Female

DRUGS (1)
  1. AFINITOR [Suspect]
     Dosage: ,ORAL
     Route: 048

REACTIONS (2)
  - URINE ANALYSIS ABNORMAL [None]
  - DIZZINESS [None]
